FAERS Safety Report 6255028-6 (Version None)
Quarter: 2009Q3

REPORT INFORMATION
  Report Type: 
  Country: None (occurrence: None)
  Receive Date: 20090702
  Receipt Date: 20090629
  Transmission Date: 20100115
  Serious: Yes (Disabling)
  Sender: FDA-Public Use
  Company Number: LB-MERCK-0906USA05738

PATIENT
  Age: 50 Year
  Sex: Male
  Weight: 95 kg

DRUGS (3)
  1. JANUVIA [Suspect]
     Indication: DIABETES MELLITUS
     Route: 048
     Dates: start: 20090515, end: 20090522
  2. GLUCOPHAGE [Concomitant]
     Route: 065
     Dates: start: 20090508, end: 20090522
  3. LIPANTHYL [Concomitant]
     Route: 048
     Dates: start: 20090508, end: 20090522

REACTIONS (1)
  - VISUAL ACUITY REDUCED [None]
